APPROVED DRUG PRODUCT: THIOLA EC
Active Ingredient: TIOPRONIN
Strength: 100MG
Dosage Form/Route: TABLET, DELAYED RELEASE;ORAL
Application: N211843 | Product #001 | TE Code: AB
Applicant: MISSION PHARMACAL CO
Approved: Jun 28, 2019 | RLD: Yes | RS: No | Type: RX

PATENTS:
Patent 11458104 | Expires: Nov 14, 2038

EXCLUSIVITY:
Code: ODE* | Date: Jun 28, 2026